FAERS Safety Report 4720495-3 (Version None)
Quarter: 2005Q3

REPORT INFORMATION
  Report Type: 
  Country: None (occurrence: None)
  Receive Date: 20050721
  Receipt Date: 20041210
  Transmission Date: 20060218
  Serious: No
  Sender: FDA-Public Use
  Company Number: US-BRISTOL-MYERS SQUIBB COMPANY-12791638

PATIENT
  Sex: Male
  Weight: 72 kg

DRUGS (2)
  1. GLUCOVANCE [Suspect]
     Indication: DIABETES MELLITUS NON-INSULIN-DEPENDENT
     Dosage: INITIAL DOSE 1.25/250 DAILY FOR 3 YEARS, UP TO 2.5/500 DAILY FOR 2 WEEKS, DOWN TO 1.25/250 DAILY
     Route: 048
  2. ASPIRIN [Concomitant]

REACTIONS (2)
  - DIARRHOEA [None]
  - FLATULENCE [None]
